FAERS Safety Report 18746825 (Version 5)
Quarter: 2021Q4

REPORT INFORMATION
  Report Type: Other
  Country: CA (occurrence: None)
  Receive Date: 20210115
  Receipt Date: 20211228
  Transmission Date: 20220303
  Serious: Yes (Hospitalization)
  Sender: FDA-Public Use
  Company Number: CA-ROCHE-2750328

PATIENT
  Age: 52 Year
  Sex: Female

DRUGS (9)
  1. OCREVUS [Suspect]
     Active Substance: OCRELIZUMAB
     Indication: Relapsing-remitting multiple sclerosis
     Dosage: 300 MG AT DAY 0 AND 14, THEN 600 MG EVERY 6 MONTH
     Route: 042
     Dates: start: 20200122
  2. WARFARIN [Concomitant]
     Active Substance: WARFARIN
  3. SYNTHROID [Concomitant]
     Active Substance: LEVOTHYROXINE SODIUM
  4. LASIX [Concomitant]
     Active Substance: FUROSEMIDE
     Indication: Pulmonary hypertension
  5. SILDENAFIL [Concomitant]
     Active Substance: SILDENAFIL
  6. FUROSEMIDE [Concomitant]
     Active Substance: FUROSEMIDE
  7. VIAGRA [Concomitant]
     Active Substance: SILDENAFIL CITRATE
  8. AMBRISENTAN [Concomitant]
     Active Substance: AMBRISENTAN
  9. GABAPENTIN [Concomitant]
     Active Substance: GABAPENTIN
     Dosage: 100 MG DAYS 3 1

REACTIONS (1)
  - Vascular device infection [Recovered/Resolved]

NARRATIVE: CASE EVENT DATE: 20210108
